FAERS Safety Report 4294708-9 (Version None)
Quarter: 2004Q1

REPORT INFORMATION
  Report Type: 
  Country: None (occurrence: None)
  Receive Date: 20040213
  Receipt Date: 20040105
  Transmission Date: 20041129
  Serious: Yes (Hospitalization)
  Sender: FDA-Public Use
  Company Number: FR-ROCHE-355035

PATIENT
  Age: 58 Year
  Sex: Male

DRUGS (11)
  1. LOXEN [Suspect]
     Indication: DRUG USE FOR UNKNOWN INDICATION
     Route: 065
     Dates: end: 20031115
  2. BACTRIM [Suspect]
     Indication: PROPHYLAXIS
     Route: 030
     Dates: start: 20030919, end: 20031106
  3. CELLCEPT [Suspect]
     Indication: PROPHYLAXIS
     Route: 042
     Dates: start: 20031024, end: 20031106
  4. CYMEVAN [Suspect]
     Indication: PROPHYLAXIS
     Route: 042
     Dates: start: 20031024, end: 20031106
  5. FLUCONAZOLE [Suspect]
     Indication: PROPHYLAXIS
     Route: 042
     Dates: start: 20031024, end: 20031109
  6. FUNGIZONE [Suspect]
     Indication: PROPHYLAXIS
     Route: 048
     Dates: start: 20031024, end: 20031108
  7. CLAVENTIN [Suspect]
     Indication: PROPHYLAXIS
     Route: 042
     Dates: start: 20030919, end: 20031107
  8. FUROSEMIDE [Suspect]
     Indication: DRUG USE FOR UNKNOWN INDICATION
     Route: 065
     Dates: end: 20031115
  9. PROGRAF [Suspect]
     Indication: DRUG USE FOR UNKNOWN INDICATION
     Route: 065
     Dates: end: 20031115
  10. SOLUPRED [Suspect]
     Indication: DRUG USE FOR UNKNOWN INDICATION
     Route: 065
     Dates: end: 20031115
  11. CIFLOX [Suspect]
     Indication: DRUG USE FOR UNKNOWN INDICATION
     Route: 065
     Dates: end: 20031115

REACTIONS (2)
  - ANAEMIA [None]
  - BONE MARROW DEPRESSION [None]
